FAERS Safety Report 6133194-0 (Version None)
Quarter: 2009Q1

REPORT INFORMATION
  Report Type: 
  Country: None (occurrence: None)
  Receive Date: 20090325
  Receipt Date: 20090325
  Transmission Date: 20090719
  Serious: Yes (Hospitalization)
  Sender: FDA-Public Use
  Company Number: None

PATIENT
  Sex: Female
  Weight: 77.1115 kg

DRUGS (1)
  1. SIMVASTATIN [Suspect]

REACTIONS (16)
  - APPARENT DEATH [None]
  - BALANCE DISORDER [None]
  - BLINDNESS [None]
  - BURNING SENSATION [None]
  - CATARACT [None]
  - COGNITIVE DISORDER [None]
  - COUGH [None]
  - DYSPNOEA [None]
  - FALL [None]
  - FORMICATION [None]
  - HYPOAESTHESIA [None]
  - MALAISE [None]
  - MEMORY IMPAIRMENT [None]
  - MUSCULAR WEAKNESS [None]
  - MYALGIA [None]
  - VOMITING [None]
